FAERS Safety Report 6720704-5 (Version None)
Quarter: 2010Q2

REPORT INFORMATION
  Report Type: 
  Country: None (occurrence: None)
  Receive Date: 20100510
  Receipt Date: 20100429
  Transmission Date: 20101027
  Serious: Yes (Hospitalization, Disabling)
  Sender: FDA-Public Use
  Company Number: 2009US001036

PATIENT
  Age: 48 Year
  Sex: Male
  Weight: 87 kg

DRUGS (1)
  1. AMEVIVE [Suspect]
     Indication: GUTTATE PSORIASIS
     Dosage: 15 MG WEEKLY INTRAMUSCULAR
     Route: 030
     Dates: start: 20050415, end: 20050912

REACTIONS (3)
  - ATRIAL FIBRILLATION [None]
  - CELLULITIS [None]
  - MYOCARDIAL INFARCTION [None]
